FAERS Safety Report 4754064-6 (Version None)
Quarter: 2005Q3

REPORT INFORMATION
  Report Type: 
  Country: None (occurrence: None)
  Receive Date: 20050826
  Receipt Date: 20050817
  Transmission Date: 20060218
  Serious: Yes (Other)
  Sender: FDA-Public Use
  Company Number: 163-20785-04110021

PATIENT
  Age: 73 Year
  Sex: Female

DRUGS (6)
  1. THALOMID [Suspect]
     Indication: MULTIPLE MYELOMA
     Dosage: 100 MG, DAILY, ORAL
     Route: 048
     Dates: start: 20041026, end: 20041030
  2. THALOMID [Suspect]
     Indication: MULTIPLE MYELOMA
     Dosage: 100 MG, DAILY, ORAL
     Route: 048
     Dates: start: 20041101, end: 20041126
  3. VELCADE [Suspect]
     Indication: MULTIPLE MYELOMA
  4. SUSTAINED-RELEASE MORPHINE (MORPHINE SULFATE) [Concomitant]
  5. OXYCODONE HCL [Concomitant]
  6. NEURONTIN [Concomitant]

REACTIONS (9)
  - BLINDNESS UNILATERAL [None]
  - BLOOD CALCIUM INCREASED [None]
  - EYE PAIN [None]
  - HAEMATOCRIT DECREASED [None]
  - HAEMOGLOBIN DECREASED [None]
  - NEUROPATHY [None]
  - PROTEIN TOTAL INCREASED [None]
  - VISION BLURRED [None]
  - WHITE BLOOD CELL COUNT DECREASED [None]
